FAERS Safety Report 7849638-X (Version None)
Quarter: 2011Q4

REPORT INFORMATION
  Report Type: 
  Country: None (occurrence: None)
  Receive Date: 20111024
  Receipt Date: 20111017
  Transmission Date: 20120403
  Serious: Yes (Life-Threatening, Hospitalization, Other)
  Sender: FDA-Public Use
  Company Number: AUR-APL-2011-05344

PATIENT
  Age: 20 Year
  Sex: Male
  Weight: 12.5 kg

DRUGS (5)
  1. TACROLIMUS [Suspect]
     Indication: IMMUNOSUPPRESSION
     Dosage: (2.5 MG), [10061138 - FUNGAL PERITONITIS] [V.14.0]
  2. METHYLPREDNISOLONE [Suspect]
     Indication: RENAL TRANSPLANT
     Dosage: (1 D)
  3. FLUCONAZOLE [Suspect]
     Indication: FUNGAL PERITONITIS
     Dosage: (3 MG 1, KG, 1 D),ORAL,   (3 MG/KG),INTRAVENOUS , (6 MG/KG),INTRAVENOUS
     Route: 042
  4. FLUCONAZOLE [Suspect]
     Indication: FUNGAL PERITONITIS
     Dosage: (3 MG 1, KG, 1 D),ORAL,   (3 MG/KG),INTRAVENOUS , (6 MG/KG),INTRAVENOUS
     Route: 042
  5. AZATHIOPRINE [Suspect]
     Indication: RENAL TRANSPLANT
     Dosage: (1 D)

REACTIONS (12)
  - URETERIC OBSTRUCTION [None]
  - GENERAL PHYSICAL HEALTH DETERIORATION [None]
  - CANDIDA SEPSIS [None]
  - FUNGAL PERITONITIS [None]
  - STRABISMUS [None]
  - IMMUNOSUPPRESSANT DRUG LEVEL INCREASED [None]
  - SEPTIC SHOCK [None]
  - ASCITES [None]
  - PERITONEAL CANDIDIASIS [None]
  - DEPRESSED LEVEL OF CONSCIOUSNESS [None]
  - DRUG INTERACTION [None]
  - COMPLICATIONS OF TRANSPLANTED KIDNEY [None]
